FAERS Safety Report 26085737 (Version 1)
Quarter: 2025Q4

REPORT INFORMATION
  Report Type: Spontaneous
  Country: JP (occurrence: JP)
  Receive Date: 20251125
  Receipt Date: 20251125
  Transmission Date: 20260118
  Serious: Yes (Other)
  Sender: JOHNSON AND JOHNSON
  Company Number: JP-JNJFOC-20251169137

PATIENT
  Age: 3 Decade
  Sex: Male

DRUGS (4)
  1. RILPIVIRINE [Suspect]
     Active Substance: RILPIVIRINE
     Indication: HIV infection
     Dosage: EVERY 1 TO 2 MONTHS
     Route: 030
     Dates: start: 2025, end: 202511
  2. VOCABRIA [Concomitant]
     Active Substance: CABOTEGRAVIR SODIUM
     Indication: HIV infection
     Dosage: EVERY 1 TO 2 MONTHS
     Route: 030
     Dates: start: 2025, end: 202511
  3. ADSORBED HEPATITIS B VACCINE [Concomitant]
     Indication: Product used for unknown indication
     Dosage: DOSE UNKNOWN
     Route: 065
     Dates: start: 2025, end: 2025
  4. ADSORBED HEPATITIS B VACCINE [Concomitant]
     Dosage: DOSE UNKNOWN
     Route: 065
     Dates: start: 2025, end: 2025

REACTIONS (1)
  - Acute hepatitis B [Not Recovered/Not Resolved]

NARRATIVE: CASE EVENT DATE: 20251101
